FAERS Safety Report 8951295 (Version 1)
Quarter: 2012Q4

REPORT INFORMATION
  Report Type: 
  Country: US (occurrence: US)
  Receive Date: 20121207
  Receipt Date: 20121207
  Transmission Date: 20130627
  Serious: Yes (Other)
  Sender: FDA-Public Use
  Company Number: US-BIOGENIDEC-2012BI057422

PATIENT
  Age: 0 Day
  Sex: Male

DRUGS (3)
  1. AVONEX [Suspect]
     Indication: MULTIPLE SCLEROSIS
     Route: 064
     Dates: start: 19981001
  2. AVONEX [Suspect]
     Indication: MULTIPLE SCLEROSIS
     Route: 064
     Dates: start: 19981101, end: 19990131
  3. AVONEX [Suspect]
     Indication: MULTIPLE SCLEROSIS
     Route: 064
     Dates: start: 20040423, end: 201203

REACTIONS (1)
  - Foetal heart rate decreased [Recovered/Resolved]
